FAERS Safety Report 17277329 (Version 1)
Quarter: 2020Q1

REPORT INFORMATION
  Report Type: Spontaneous
  Country: US (occurrence: US)
  Receive Date: 20200116
  Receipt Date: 20200116
  Transmission Date: 20200409
  Serious: Yes (Life-Threatening, Hospitalization)
  Sender: FDA-Public Use
  Company Number: US-MYLANLABS-2020M1005387

PATIENT
  Age: 31 Year
  Sex: Male

DRUGS (6)
  1. DIPHENHYDRAMINE. [Concomitant]
     Active Substance: DIPHENHYDRAMINE
     Indication: FOOD ALLERGY
     Dosage: UNK
     Route: 065
  2. DEXAMETHASONE. [Suspect]
     Active Substance: DEXAMETHASONE
     Indication: FOOD ALLERGY
     Dosage: UNK
     Route: 065
  3. EPINEPHRINE. [Suspect]
     Active Substance: EPINEPHRINE
     Indication: FOOD ALLERGY
     Dosage: UNK
     Route: 030
  4. METHYLPREDNISOLONE. [Suspect]
     Active Substance: METHYLPREDNISOLONE
     Indication: FOOD ALLERGY
     Dosage: UNK
     Route: 030
  5. EPINEPHRINE. [Suspect]
     Active Substance: EPINEPHRINE
     Indication: ANAPHYLACTIC REACTION
     Dosage: INTRAVENOUS EPINEPHRINE DRIP
     Route: 042
  6. HYDROCORTISONE. [Suspect]
     Active Substance: HYDROCORTISONE
     Indication: FOOD ALLERGY
     Dosage: UNK
     Route: 042

REACTIONS (6)
  - Therapeutic product cross-reactivity [Recovering/Resolving]
  - Condition aggravated [Recovering/Resolving]
  - Pneumonia aspiration [Recovering/Resolving]
  - Drug ineffective [Unknown]
  - Anaphylactic reaction [Recovering/Resolving]
  - Dermatitis bullous [Recovering/Resolving]
